FAERS Safety Report 8369925-9 (Version None)
Quarter: 2012Q1

REPORT INFORMATION
  Report Type: 
  Country: None (occurrence: None)
  Receive Date: 20120323
  Receipt Date: 20110726
  Transmission Date: 20120608
  Serious: Yes (Hospitalization)
  Sender: FDA-Public Use
  Company Number: 163-21880-11064041

PATIENT
  Age: 81 Year
  Sex: Male

DRUGS (10)
  1. CARDURA [Concomitant]
  2. REVLIMID [Suspect]
     Indication: MULTIPLE MYELOMA
     Dosage: 25 MG, 1 IN 1 D, PO, 15 MG, 1 IN 1 D, PO
     Route: 048
     Dates: start: 20110701
  3. REVLIMID [Suspect]
     Indication: MULTIPLE MYELOMA
     Dosage: 25 MG, 1 IN 1 D, PO, 15 MG, 1 IN 1 D, PO
     Route: 048
     Dates: start: 20110616
  4. ZOMETA [Concomitant]
  5. CLONIDINE HCL (CLONIDINE HYDROCHLORIDE) [Concomitant]
  6. DILTIAZEM HCL CR (DILTIAZEM HYDROCHLORIDE) [Concomitant]
  7. OXYCONTIN [Concomitant]
  8. PREDNISONE TAB [Concomitant]
  9. VELCADE [Concomitant]
  10. DEXAMETHASONE [Concomitant]

REACTIONS (5)
  - VISION BLURRED [None]
  - DRUG INTOLERANCE [None]
  - DECREASED APPETITE [None]
  - SYNCOPE [None]
  - NAUSEA [None]
